FAERS Safety Report 11364848 (Version 3)
Quarter: 2015Q4

REPORT INFORMATION
  Report Type: Spontaneous
  Country: JP (occurrence: JP)
  Receive Date: 20150811
  Receipt Date: 20151009
  Transmission Date: 20160304
  Serious: Yes (Other)
  Sender: FDA-Public Use
  Company Number: JP-GILEAD-2015-0165945

PATIENT
  Sex: Male

DRUGS (3)
  1. SOVALDI [Suspect]
     Active Substance: SOFOSBUVIR
     Indication: CHRONIC HEPATITIS C
     Dosage: 400 MG, QD
     Route: 048
     Dates: start: 20150716
  2. COPEGUS [Suspect]
     Active Substance: RIBAVIRIN
     Indication: VIRAEMIA
     Dosage: 800 MG, QD
     Route: 048
     Dates: start: 20150716, end: 20150730
  3. COPEGUS [Suspect]
     Active Substance: RIBAVIRIN
     Dosage: 200 MG, QD
     Route: 048
     Dates: start: 20150731

REACTIONS (1)
  - Glomerular filtration rate decreased [Recovering/Resolving]

NARRATIVE: CASE EVENT DATE: 20150730
